FAERS Safety Report 12475421 (Version 2)
Quarter: 2016Q2

REPORT INFORMATION
  Report Type: Spontaneous
  Country: CI (occurrence: CI)
  Receive Date: 20160617
  Receipt Date: 20160630
  Transmission Date: 20160815
  Serious: Yes (Hospitalization, Other)
  Sender: FDA-Public Use
  Company Number: PHHY2016CI081093

PATIENT
  Age: 74 Year
  Sex: Male

DRUGS (2)
  1. COARTEM [Suspect]
     Active Substance: ARTEMETHER\LUMEFANTRINE
     Dosage: 6 DF (SIX TABLETS TAKEN WITHIN 6 HOURS)
     Route: 048
  2. COARTEM [Suspect]
     Active Substance: ARTEMETHER\LUMEFANTRINE
     Indication: PRODUCT USED FOR UNKNOWN INDICATION
     Dosage: 1 DF, BID (FOR THREE DAYS)
     Route: 048

REACTIONS (6)
  - Nausea [Unknown]
  - Intentional product misuse [Unknown]
  - Limb discomfort [Unknown]
  - Discomfort [Unknown]
  - Overdose [Unknown]
  - Pneumonia [Unknown]

NARRATIVE: CASE EVENT DATE: 20160608
